FAERS Safety Report 6245330-6 (Version None)
Quarter: 2009Q2

REPORT INFORMATION
  Report Type: 
  Country: None (occurrence: None)
  Receive Date: 20090625
  Receipt Date: 20090622
  Transmission Date: 20091009
  Serious: Yes (Death, Hospitalization)
  Sender: FDA-Public Use
  Company Number: CA-ELI_LILLY_AND_COMPANY-CA200905002581

PATIENT
  Sex: Female
  Weight: 63.3 kg

DRUGS (27)
  1. XIGRIS [Suspect]
     Indication: SEPSIS
     Dosage: 1560 UG, EVERY HOUR
     Route: 042
     Dates: start: 20090429
  2. PANTOPRAZOLE SODIUM [Concomitant]
     Dosage: 40 MG, OTHER; 1 DOSE
     Route: 042
     Dates: start: 20090428, end: 20090428
  3. METRONIDAZOLE [Concomitant]
     Dosage: 500 MG, EVERY 8 HRS
     Route: 042
     Dates: start: 20090428
  4. PIPERACILLIN [Concomitant]
     Dosage: 3375 MG, EVERY 6 HRS
     Route: 042
     Dates: start: 20090428
  5. TAZOBACTAM [Concomitant]
     Dosage: UNK, EVERY 6 HRS
     Dates: start: 20090428
  6. CIPROFLOXACIN [Concomitant]
     Dosage: 400 MG, DAILY (1/D)
     Route: 042
     Dates: start: 20090429
  7. FAMOTIDINE [Concomitant]
     Dosage: 20 MG, DAILY (1/D)
     Route: 042
     Dates: start: 20090429
  8. HYDROCORTISONE [Concomitant]
     Dosage: 100 MG, EVERY 6 HRS
     Route: 042
     Dates: start: 20090429
  9. SODIUM BICARBONATE [Concomitant]
     Indication: ELECTROLYTE SUBSTITUTION THERAPY
     Dosage: UNK, UNK
     Dates: start: 20090429
  10. POTASSIUM CHLORIDE [Concomitant]
     Indication: ELECTROLYTE SUBSTITUTION THERAPY
     Dosage: UNK, UNK
     Dates: start: 20090429
  11. CALCIUM GLUCONATE [Concomitant]
     Indication: ELECTROLYTE SUBSTITUTION THERAPY
     Dosage: UNK, UNK
     Dates: start: 20090429
  12. SODIUM PHOSPHATE [Concomitant]
     Indication: ELECTROLYTE SUBSTITUTION THERAPY
     Dosage: UNK, UNK
     Dates: start: 20090429
  13. MAGNESIUM SULFATE [Concomitant]
     Indication: ELECTROLYTE SUBSTITUTION THERAPY
     Dosage: UNK, UNK
     Dates: start: 20090429
  14. FENTANYL [Concomitant]
     Indication: PAIN
     Dosage: UNK, AS NEEDED
     Route: 042
     Dates: start: 20090429
  15. MIDAZOLAM HCL [Concomitant]
     Indication: SEDATION
     Dosage: UNK, AS NEEDED
     Route: 042
     Dates: start: 20090429
  16. INSULIN, PORK [Concomitant]
     Route: 042
     Dates: start: 20090429
  17. NOREPINEPHRINE BITARTRATE [Concomitant]
     Route: 042
     Dates: start: 20090429
  18. VASOPRESSIN [Concomitant]
     Route: 042
     Dates: start: 20090429
  19. DOBUTREX [Concomitant]
     Route: 042
     Dates: start: 20090429
  20. DOPAMINE HCL [Concomitant]
     Route: 042
  21. LIDOCAINE AND EPINEPHRINE [Concomitant]
     Route: 042
     Dates: start: 20090430
  22. DIMENHYDRINATE [Concomitant]
     Dosage: UNK, AS NEEDED
  23. MORPHINE [Concomitant]
     Dosage: UNK, AS NEEDED
  24. ONDANSETRON [Concomitant]
     Dosage: UNK, AS NEEDED
  25. OXYGEN [Concomitant]
     Indication: MECHANICAL VENTILATION
     Dosage: 5 LITER, UNK
     Dates: start: 20090428, end: 20090428
  26. OXYGEN [Concomitant]
     Dosage: 12 LITER, UNK
     Dates: start: 20090428, end: 20090429
  27. OXYGEN [Concomitant]
     Dosage: 15 LITER, UNK
     Dates: start: 20090429

REACTIONS (1)
  - SEPTIC SHOCK [None]
